FAERS Safety Report 7752721-0 (Version None)
Quarter: 2011Q3

REPORT INFORMATION
  Report Type: 
  Country: None (occurrence: None)
  Receive Date: 20110913
  Receipt Date: 20110901
  Transmission Date: 20111222
  Serious: Yes (Hospitalization)
  Sender: FDA-Public Use
  Company Number: 2011SP041383

PATIENT
  Age: 50 Year
  Sex: Female

DRUGS (13)
  1. METHYLPREDNISOLONE [Suspect]
     Indication: PREMEDICATION
     Dosage: 60 MG;ONCE;IV
     Route: 042
     Dates: start: 20110621, end: 20110621
  2. DESLORATADINE [Suspect]
     Indication: PREMEDICATION
     Dosage: 5 MG;ONCE;PO
     Route: 048
     Dates: start: 20110621, end: 20110621
  3. KYTRIL [Suspect]
     Indication: PREMEDICATION
     Dosage: 3 MG;ONCE;IV
     Route: 042
     Dates: start: 20110621, end: 20110621
  4. EMEND [Suspect]
     Indication: PREMEDICATION
     Dosage: 125 MG;ONCE;PO
     Route: 048
     Dates: start: 20110621, end: 20110621
  5. CISPLATIN [Concomitant]
  6. RANITIDINE HYDROCHLORIDE [Suspect]
     Indication: PREMEDICATION
     Dosage: 50 MG;ONCE;IV
     Route: 042
     Dates: start: 20110621, end: 20110621
  7. XELODA [Concomitant]
  8. PACLITAXEL [Suspect]
     Indication: RECTAL CANCER
     Dosage: 306.25 MG;ONCE;IV
     Route: 042
     Dates: start: 20110621, end: 20110621
  9. CARBOPLATIN [Suspect]
     Indication: RECTAL CANCER
     Dosage: 664.6 MG;ONCE;IV
     Route: 042
     Dates: start: 20110621, end: 20110621
  10. CARBOPLATIN [Suspect]
     Indication: RECTAL CANCER
     Dosage: 664.6 MG;ONCE;IV
     Route: 042
     Dates: start: 20110812
  11. DOCETAXEL [Concomitant]
  12. METOCLOPRAMIDE [Suspect]
     Indication: PREMEDICATION
     Dosage: 20 MG;ONCE;IV
     Route: 042
     Dates: start: 20110621, end: 20110621
  13. FLUOROURACIL [Concomitant]

REACTIONS (11)
  - HYPERHIDROSIS [None]
  - BRONCHITIS [None]
  - ABDOMINAL PAIN [None]
  - RESPIRATORY DISORDER [None]
  - NAUSEA [None]
  - INFUSION RELATED REACTION [None]
  - PAIN [None]
  - MALAISE [None]
  - VOMITING [None]
  - HYPOTENSION [None]
  - GENERAL PHYSICAL HEALTH DETERIORATION [None]
